FAERS Safety Report 5071324-2 (Version None)
Quarter: 2006Q3

REPORT INFORMATION
  Report Type: 
  Country: None (occurrence: None)
  Receive Date: 20060804
  Receipt Date: 20051123
  Transmission Date: 20061208
  Serious: No
  Sender: FDA-Public Use
  Company Number: US-AMGEN-US159027

PATIENT
  Sex: Male

DRUGS (27)
  1. ARANESP [Suspect]
     Indication: RENAL TRANSPLANT
     Route: 065
     Dates: start: 20030201
  2. PREDNISONE TAB [Concomitant]
  3. CELLCEPT [Concomitant]
  4. NPH INSULIN [Concomitant]
  5. INSULIN ILETIN I REGULAR [Concomitant]
  6. VERAPAMIL [Concomitant]
  7. CARDURA [Concomitant]
  8. ZOLOFT [Concomitant]
  9. LIPITOR [Concomitant]
  10. ACCUPRIL [Concomitant]
  11. HYDROCODONE [Concomitant]
  12. HYDROCHLOROTHIAZID [Concomitant]
  13. DOCUSATE [Concomitant]
  14. RAPAMUNE [Concomitant]
  15. ROCALTROL [Concomitant]
  16. MIACALCIN [Concomitant]
  17. ZYRTEC [Concomitant]
  18. SINGULAIR [Concomitant]
  19. SENSIPAR [Concomitant]
  20. ZANTAC [Concomitant]
  21. CLONIDINE [Concomitant]
  22. PROTONIX [Concomitant]
  23. INFED [Concomitant]
     Route: 042
  24. LORTAB [Concomitant]
  25. COLACE [Concomitant]
  26. NORVASC [Concomitant]
  27. NEPHRO-VITE [Concomitant]

REACTIONS (1)
  - THERAPEUTIC RESPONSE DECREASED [None]
